FAERS Safety Report 4302627-4 (Version None)
Quarter: 2004Q1

REPORT INFORMATION
  Report Type: 
  Country: None (occurrence: None)
  Receive Date: 20040217
  Receipt Date: 20030826
  Transmission Date: 20041129
  Serious: Yes (Other)
  Sender: FDA-Public Use
  Company Number: 2003174136US

PATIENT
  Sex: Male

DRUGS (2)
  1. EMCYT [Suspect]
     Indication: PROSTATE CANCER
     Dosage: ORAL
     Route: 048
  2. TAXOTERE [Suspect]
     Indication: PROSTATE CANCER

REACTIONS (1)
  - PHLEBITIS [None]
